FAERS Safety Report 7682835-5 (Version None)
Quarter: 2011Q3

REPORT INFORMATION
  Report Type: 
  Country: None (occurrence: None)
  Receive Date: 20110812
  Receipt Date: 20110812
  Transmission Date: 20111222
  Serious: Yes (Life-Threatening, Hospitalization)
  Sender: FDA-Public Use
  Company Number: None

PATIENT
  Age: 82 Year
  Sex: Male
  Weight: 66.1 kg

DRUGS (1)
  1. DIGOXIN [Suspect]
     Dosage: 0.25 MG EVERY DAY PO
     Route: 048
     Dates: start: 20110206, end: 20110509

REACTIONS (3)
  - RENAL FAILURE ACUTE [None]
  - BRADYCARDIA [None]
  - CONFUSIONAL STATE [None]
